FAERS Safety Report 19166264 (Version 1)
Quarter: 2021Q2

REPORT INFORMATION
  Report Type: Spontaneous
  Country: AT (occurrence: AT)
  Receive Date: 20210422
  Receipt Date: 20210422
  Transmission Date: 20210717
  Serious: Yes (Other)
  Sender: FDA-Public Use
  Company Number: AT-STRIDES ARCOLAB LIMITED-2021SP004443

PATIENT
  Age: 47 Year
  Sex: Male

DRUGS (4)
  1. BELATACEPT [Concomitant]
     Active Substance: BELATACEPT
     Indication: TRANSPLANT
     Dosage: UNK
     Route: 065
     Dates: start: 2009
  2. MYCOPHENOLATE MOFETIL. [Suspect]
     Active Substance: MYCOPHENOLATE MOFETIL
     Indication: TRANSPLANT
     Dosage: UNK
     Route: 065
     Dates: start: 2009
  3. TACROLIMUS. [Suspect]
     Active Substance: TACROLIMUS
     Indication: TRANSPLANT
     Dosage: UNK
     Route: 065
     Dates: start: 2009
  4. ALEMTUZUMAB [Concomitant]
     Active Substance: ALEMTUZUMAB
     Indication: TRANSPLANT
     Dosage: UNK
     Route: 065
     Dates: start: 2009

REACTIONS (9)
  - Hyperlipidaemia [Unknown]
  - Gastric cancer [Unknown]
  - Nephropathy [Unknown]
  - Reaction to excipient [Unknown]
  - Emphysema [Unknown]
  - Renal failure [Unknown]
  - Transplant rejection [Unknown]
  - Off label use [Unknown]
  - Hypertension [Unknown]
